FAERS Safety Report 4868801-3 (Version None)
Quarter: 2005Q4

REPORT INFORMATION
  Report Type: 
  Country: None (occurrence: None)
  Receive Date: 20051223
  Receipt Date: 20051214
  Transmission Date: 20060501
  Serious: Yes (Hospitalization)
  Sender: FDA-Public Use
  Company Number: 13083

PATIENT
  Age: 68 Year
  Sex: Male
  Weight: 74 kg

DRUGS (8)
  1. FLUOROURACIL [Suspect]
     Indication: BILIARY NEOPLASM
     Dosage: 375 MG/M2 DAILY IV
     Route: 042
     Dates: start: 20051121
  2. LEUCOVORIN [Suspect]
     Indication: BILIARY NEOPLASM
     Dosage: 25 MG/M2 DAILY IV
     Route: 042
     Dates: start: 20051121
  3. MOVICOL                 /01053601/ [Concomitant]
  4. NEXIUM [Concomitant]
  5. METRONIDAZOLE [Concomitant]
  6. CLARITHROMYCIN [Concomitant]
  7. METOCLOPRAMIDE [Concomitant]
  8. KEVATRIL [Concomitant]

REACTIONS (2)
  - DRUG TOXICITY [None]
  - PANCREATITIS [None]
